FAERS Safety Report 25219989 (Version 1)
Quarter: 2025Q2

REPORT INFORMATION
  Report Type: Spontaneous
  Country: US (occurrence: US)
  Receive Date: 20250421
  Receipt Date: 20250421
  Transmission Date: 20250716
  Serious: Yes (Hospitalization)
  Sender: MYLAN
  Company Number: US-MYLANLABS-2025M1033522

PATIENT
  Age: 43 Year
  Sex: Female

DRUGS (11)
  1. DOCETAXEL [Suspect]
     Active Substance: DOCETAXEL
     Indication: HER2 positive breast cancer
     Dosage: 75 MILLIGRAM/SQ. METER, Q3W; INFUSION, EVERY 3 WEEKS PLANNED TO COMPLETE 6 CYCLES
  2. CARBOPLATIN [Suspect]
     Active Substance: CARBOPLATIN
     Indication: HER2 positive breast cancer
     Dosage: UNK, Q3W; AREA UNDER THE CURVE (AUC) OF 6 INFUSION, EVERY 3 WEEKS PLANNED TO COMPLETE 6 CYCLES
  3. CARBOPLATIN [Suspect]
     Active Substance: CARBOPLATIN
  4. TRASTUZUMAB [Suspect]
     Active Substance: TRASTUZUMAB
     Indication: HER2 positive breast cancer
     Dosage: 8 MILLIGRAM/KILOGRAM, Q3W; ~LOADING DOSE, EVERY 3 WEEKS INFUSION, PLANNED TO COMPLETE 6 CYCLES
  5. TRASTUZUMAB [Suspect]
     Active Substance: TRASTUZUMAB
     Dosage: 6 MILLIGRAM/KILOGRAM, Q3W; EVERY 3 WEEKS INFUSION, PLANNED TO COMPLETE 6 CYCLES
  6. PERTUZUMAB [Suspect]
     Active Substance: PERTUZUMAB
     Indication: HER2 positive breast cancer
  7. PERTUZUMAB [Suspect]
     Active Substance: PERTUZUMAB
     Dosage: 420 MILLIGRAM, Q3W; EVERY 3 WEEKS INFUSION, PLANNED TO COMPLETE 6 CYCLES
  8. PEGFILGRASTIM [Concomitant]
     Active Substance: PEGFILGRASTIM
     Indication: Prophylaxis
  9. APREPITANT [Concomitant]
     Active Substance: APREPITANT
     Indication: Premedication
  10. DEXAMETHASONE [Concomitant]
     Active Substance: DEXAMETHASONE
     Indication: Premedication
  11. PALONOSETRON [Concomitant]
     Active Substance: PALONOSETRON
     Indication: Premedication

REACTIONS (1)
  - Cystitis haemorrhagic [Recovered/Resolved]
